FAERS Safety Report 6622032-5 (Version None)
Quarter: 2010Q1

REPORT INFORMATION
  Report Type: 
  Country: None (occurrence: None)
  Receive Date: 20100304
  Receipt Date: 20091119
  Transmission Date: 20100710
  Serious: Yes (Life-Threatening, Hospitalization, Other)
  Sender: FDA-Public Use
  Company Number: WAES 0911GBR00091

PATIENT
  Age: 79 Year
  Sex: Female

DRUGS (13)
  1. TAB LAROPIPRANT (+) NIACIN [Suspect]
     Dosage: 1 GM/DAILY, PO
     Route: 048
     Dates: start: 20090723, end: 20090726
  2. TGAB EZETIMIBE (+) SIMVASTATIN [Suspect]
     Indication: HYPERCHOLESTEROLAEMIA
     Dosage: 10/40 MG/DAILY, PO
     Route: 048
     Dates: start: 20090726
  3. ACETAMINOPHEN [Concomitant]
  4. ALBUTEROL [Concomitant]
  5. ALENDRONATE SODIUM [Concomitant]
  6. ASPIRIN [Concomitant]
  7. BECLOMETHASONE DIPROPIONATE [Concomitant]
  8. CALCIUM CARBONATE (+) CHOLECALCIFEROL [Concomitant]
  9. CANDESARTAN [Concomitant]
  10. DILTIAZEM HCL [Concomitant]
  11. ISOSORBIDE MONONITRATE [Concomitant]
  12. NITROGLYCERIN [Concomitant]
  13. SALMETEROL [Concomitant]

REACTIONS (8)
  - ASTHMA [None]
  - BRONCHOALVEOLAR LAVAGE ABNORMAL [None]
  - HYPERCAPNIA [None]
  - NO THERAPEUTIC RESPONSE [None]
  - PSEUDOMONAS INFECTION [None]
  - RASH [None]
  - STREPTOCOCCAL INFECTION [None]
  - TACHYCARDIA [None]
